FAERS Safety Report 5768142-6 (Version None)
Quarter: 2008Q2

REPORT INFORMATION
  Report Type: 
  Country: None (occurrence: None)
  Receive Date: 20080601
  Receipt Date: 20080219
  Transmission Date: 20081010
  Serious: No
  Sender: FDA-Public Use
  Company Number: US200712004046

PATIENT
  Age: 22 Year
  Sex: Female

DRUGS (1)
  1. BYETTA [Suspect]
     Indication: DIABETES MELLITUS
     Dosage: 10 MG, SUBCUTANEOUS
     Route: 058
     Dates: start: 20070701

REACTIONS (2)
  - BLOOD GLUCOSE FLUCTUATION [None]
  - NAUSEA [None]
